FAERS Safety Report 6012880-7 (Version None)
Quarter: 2008Q4

REPORT INFORMATION
  Report Type: 
  Country: None (occurrence: None)
  Receive Date: 20081219
  Receipt Date: 20081208
  Transmission Date: 20090506
  Serious: Yes (Other)
  Sender: FDA-Public Use
  Company Number: US-BRISTOL-MYERS SQUIBB COMPANY-14436216

PATIENT
  Age: 49 Year
  Sex: Female

DRUGS (4)
  1. COUMADIN [Suspect]
  2. HEPARIN SODIUM [Suspect]
     Indication: DEEP VEIN THROMBOSIS
  3. HEPARIN SODIUM [Suspect]
     Indication: PULMONARY EMBOLISM
  4. ENOXAPARIN SODIUM [Suspect]

REACTIONS (2)
  - ADRENAL INSUFFICIENCY [None]
  - THROMBOCYTOPENIA [None]
